FAERS Safety Report 4768797-9 (Version None)
Quarter: 2005Q3

REPORT INFORMATION
  Report Type: 
  Country: None (occurrence: None)
  Receive Date: 20050914
  Receipt Date: 20050706
  Transmission Date: 20060218
  Serious: Yes (Death, Other)
  Sender: FDA-Public Use
  Company Number: HK-ABBOTT-05P-075-0305534-00

PATIENT
  Age: 84 Year
  Sex: Female

DRUGS (11)
  1. CLARITHROMYCIN [Suspect]
     Indication: PNEUMONIA
     Route: 048
     Dates: start: 19990831, end: 19990902
  2. COLCHICINE [Interacting]
     Indication: GOUT
     Route: 048
     Dates: start: 19990901, end: 19990902
  3. CEFOTAXIME [Concomitant]
     Indication: PNEUMONIA
     Route: 042
     Dates: start: 19990901, end: 19990902
  4. PROTAPHANE [Concomitant]
     Indication: DIABETES MELLITUS
     Dosage: HM 24 UNITS, HIOM 16 UNITS, HIPM
     Route: 058
  5. ISOSORBIDE MONONITRATE [Concomitant]
     Indication: MYOCARDIAL ISCHAEMIA
  6. CALCIUM CARBONATE [Concomitant]
     Indication: HYPOCALCAEMIA
  7. FUROSEMIDE [Concomitant]
     Indication: RENAL FAILURE
  8. FUROSEMIDE [Concomitant]
     Indication: CARDIAC FAILURE
  9. DILTIAZEM [Concomitant]
     Indication: HYPERTENSION
  10. ASPIRIN [Concomitant]
     Indication: MYOCARDIAL ISCHAEMIA
  11. ALLOPURINOL [Concomitant]
     Indication: HYPERURICAEMIA

REACTIONS (4)
  - DRUG INTERACTION [None]
  - DRUG TOXICITY [None]
  - FLUID RETENTION [None]
  - GOUT [None]
